FAERS Safety Report 6584664-2 (Version None)
Quarter: 2010Q1

REPORT INFORMATION
  Report Type: 
  Country: None (occurrence: None)
  Receive Date: 20100204
  Receipt Date: 20100126
  Transmission Date: 20100710
  Serious: Yes (Other)
  Sender: FDA-Public Use
  Company Number: 494355

PATIENT
  Age: 47 Year
  Sex: Male

DRUGS (4)
  1. VINORELBINE TARTRATE [Suspect]
     Indication: HODGKIN'S DISEASE
  2. GEMCITABINE HCL [Suspect]
     Indication: HODGKIN'S DISEASE
  3. IFOSFAMIDE [Suspect]
     Indication: HODGKIN'S DISEASE
  4. PREDNISONE TAB [Suspect]
     Indication: HODGKIN'S DISEASE

REACTIONS (3)
  - DERMATITIS BULLOUS [None]
  - NEUTROPENIA [None]
  - SKIN TOXICITY [None]
